FAERS Safety Report 23575207 (Version 1)
Quarter: 2024Q1

REPORT INFORMATION
  Report Type: Spontaneous
  Country: FR (occurrence: FR)
  Receive Date: 20240228
  Receipt Date: 20240228
  Transmission Date: 20240409
  Serious: Yes (Hospitalization)
  Sender: FDA-Public Use
  Company Number: None

PATIENT
  Age: 84 Year
  Sex: Male
  Weight: 87 kg

DRUGS (4)
  1. CLOPIDOGREL [Suspect]
     Active Substance: CLOPIDOGREL BISULFATE
     Indication: Cerebrovascular accident
     Dosage: UNK
     Route: 048
     Dates: start: 20230317, end: 20230426
  2. LANSOPRAZOLE [Suspect]
     Active Substance: LANSOPRAZOLE
     Indication: Cerebrovascular accident
     Dosage: UNK
     Route: 048
     Dates: start: 20230317, end: 20230426
  3. EZETIMIBE [Concomitant]
     Active Substance: EZETIMIBE
     Indication: Cerebrovascular accident
     Dosage: UNK
     Route: 048
     Dates: start: 20230317
  4. ATORVASTATIN [Concomitant]
     Active Substance: ATORVASTATIN
     Indication: Cerebrovascular accident
     Dosage: UNK
     Route: 048
     Dates: start: 20230317

REACTIONS (2)
  - Pancytopenia [Recovered/Resolved]
  - Erythema [Recovered/Resolved]

NARRATIVE: CASE EVENT DATE: 20230424
